FAERS Safety Report 6378547-0 (Version None)
Quarter: 2009Q3

REPORT INFORMATION
  Report Type: 
  Country: None (occurrence: None)
  Receive Date: 20090921
  Receipt Date: 20090915
  Transmission Date: 20100115
  Serious: Yes (Death, Congenital Anomaly, Other)
  Sender: FDA-Public Use
  Company Number: 2008US001483

PATIENT
  Sex: Female

DRUGS (7)
  1. PROGRAF [Suspect]
     Indication: DRUG EXPOSURE DURING PREGNANCY
     Dosage: 5 MG, BID
  2. MYCOPHENOLATE MOFETIL [Suspect]
     Indication: DRUG EXPOSURE DURING PREGNANCY
     Dosage: 1000 MG, BID
  3. PREDNISONE [Suspect]
     Indication: DRUG EXPOSURE DURING PREGNANCY
     Dosage: 2.5 MG, BID
  4. PRENATAL VITAMINS (THIAMINE MONONITRATE, CALCIUM PANTOTHENATE, NICOTIN [Concomitant]
  5. FOLIC ACID [Concomitant]
  6. BACTRIM [Concomitant]
  7. ACYCLOVIR [Concomitant]

REACTIONS (31)
  - BRAIN MALFORMATION [None]
  - CARDIOPULMONARY FAILURE [None]
  - CATARACT [None]
  - CENTRAL NERVOUS SYSTEM NECROSIS [None]
  - CLEFT LIP [None]
  - CLEFT PALATE [None]
  - COLOBOMA [None]
  - CONGENITAL MITRAL VALVE STENOSIS [None]
  - DOUBLE OUTLET RIGHT VENTRICLE [None]
  - EXTERNAL AUDITORY CANAL ATRESIA [None]
  - FEEDING DISORDER NEONATAL [None]
  - FINGER DEFORMITY [None]
  - GASTROINTESTINAL DISORDER [None]
  - HEART DISEASE CONGENITAL [None]
  - HYPERTELORISM OF ORBIT [None]
  - INTESTINAL MALROTATION [None]
  - MATERNAL DRUGS AFFECTING FOETUS [None]
  - MICROPHTHALMOS [None]
  - MICROTIA [None]
  - NEONATAL RESPIRATORY DISTRESS SYNDROME [None]
  - PATENT DUCTUS ARTERIOSUS [None]
  - PNEUMONIA [None]
  - PREMATURE BABY [None]
  - PULMONARY HYPERTENSIVE CRISIS [None]
  - PULMONARY VALVE STENOSIS CONGENITAL [None]
  - PULMONARY VASCULAR DISORDER [None]
  - RIB DEFORMITY [None]
  - SPINAL DEFORMITY [None]
  - STEAL SYNDROME [None]
  - TERATOGENICITY [None]
  - VENTRICULAR HYPOPLASIA [None]
